FAERS Safety Report 8467447-8 (Version None)
Quarter: 2012Q2

REPORT INFORMATION
  Report Type: 
  Country: None (occurrence: None)
  Receive Date: 20120626
  Receipt Date: 20120427
  Transmission Date: 20120825
  Serious: No
  Sender: FDA-Public Use
  Company Number: US-ASTRAZENECA-2012SE20360

PATIENT
  Age: 64 Year
  Sex: Male

DRUGS (13)
  1. CAPRELSA [Suspect]
     Indication: BLOOD THYROID STIMULATING HORMONE ABNORMAL
     Route: 048
  2. TOPROL-XL [Concomitant]
  3. CAPRELSA [Suspect]
     Route: 048
  4. ZOMETA [Concomitant]
  5. AMLODIPINE BESYLATE [Concomitant]
  6. SYNTHROID [Concomitant]
  7. COZAAR [Concomitant]
  8. PROMETHAZINE HCL [Concomitant]
  9. ZOLOFT [Concomitant]
  10. CAPRELSA [Suspect]
     Indication: THYROID CANCER
     Route: 048
  11. CAPRELSA [Suspect]
     Route: 048
  12. CALCIUM 500 D [Concomitant]
  13. LIPITOR [Concomitant]

REACTIONS (6)
  - NAUSEA [None]
  - HYPOAESTHESIA [None]
  - BLOOD PRESSURE INCREASED [None]
  - PALPITATIONS [None]
  - PROTEINURIA [None]
  - ACNE [None]
